FAERS Safety Report 15807823 (Version 1)
Quarter: 2019Q1

REPORT INFORMATION
  Report Type: Spontaneous
  Country: KR (occurrence: KR)
  Receive Date: 20190110
  Receipt Date: 20190110
  Transmission Date: 20190417
  Serious: Yes (Other)
  Sender: FDA-Public Use
  Company Number: KR-PFIZER INC-2019012417

PATIENT
  Age: 57 Year
  Sex: Female

DRUGS (1)
  1. CRIZOTINIB [Suspect]
     Active Substance: CRIZOTINIB
     Indication: NON-SMALL CELL LUNG CANCER
     Dosage: UNK
     Dates: start: 20160608, end: 20171217

REACTIONS (4)
  - Pulmonary embolism [Unknown]
  - Adrenal insufficiency [Unknown]
  - Neoplasm progression [Unknown]
  - Pneumocystis jirovecii pneumonia [Unknown]

NARRATIVE: CASE EVENT DATE: 201607
